FAERS Safety Report 7727808-9 (Version None)
Quarter: 2011Q3

REPORT INFORMATION
  Report Type: 
  Country: None (occurrence: None)
  Receive Date: 20110905
  Receipt Date: 20110824
  Transmission Date: 20111222
  Serious: Yes (Hospitalization)
  Sender: FDA-Public Use
  Company Number: US-BIOGENIDEC-2011BI018942

PATIENT
  Age: 61 Year
  Sex: Female
  Weight: 39 kg

DRUGS (14)
  1. LISINOPRIL [Concomitant]
     Route: 048
  2. LORTAB [Concomitant]
     Route: 048
     Dates: end: 20110519
  3. LORAZEPAM [Concomitant]
     Route: 048
  4. ZOLPIDEM [Concomitant]
     Route: 048
  5. MULTI-VITAMIN [Concomitant]
     Route: 048
  6. PLAVIX [Concomitant]
     Route: 048
  7. TYSABRI [Suspect]
     Indication: MULTIPLE SCLEROSIS
     Route: 042
     Dates: start: 20091221
  8. LYRICA [Concomitant]
     Route: 048
  9. NUVIGIL [Concomitant]
     Route: 048
  10. ASPIRIN [Concomitant]
     Route: 048
  11. CALCIUM 600 PLUS VITAMIN D [Concomitant]
     Route: 048
  12. CARBAMAZEPINE [Concomitant]
     Route: 048
  13. CYCLOBENZAPRINE [Concomitant]
     Dates: start: 20101118
  14. SOLIFENACIN SUCCINATE [Concomitant]
     Route: 048

REACTIONS (13)
  - RENAL FAILURE ACUTE [None]
  - FALL [None]
  - WEIGHT BEARING DIFFICULTY [None]
  - DEHYDRATION [None]
  - DEPRESSION [None]
  - HYPOPHAGIA [None]
  - METABOLIC ACIDOSIS [None]
  - GROIN PAIN [None]
  - DIARRHOEA [None]
  - MOBILITY DECREASED [None]
  - OVERDOSE [None]
  - ANAEMIA [None]
  - URINARY TRACT INFECTION [None]
